FAERS Safety Report 7604150-8 (Version None)
Quarter: 2011Q2

REPORT INFORMATION
  Report Type: 
  Country: None (occurrence: None)
  Receive Date: 20110630
  Receipt Date: 20110617
  Transmission Date: 20111010
  Serious: Yes (Life-Threatening, Hospitalization)
  Sender: FDA-Public Use
  Company Number: TCI2011A03614

PATIENT

DRUGS (1)
  1. ACTOS [Suspect]
     Indication: DIABETES MELLITUS
     Route: 048

REACTIONS (1)
  - BLADDER CANCER [None]
